FAERS Safety Report 4321041-9 (Version None)
Quarter: 2004Q1

REPORT INFORMATION
  Report Type: 
  Country: None (occurrence: None)
  Receive Date: 20040315
  Receipt Date: 20030730
  Transmission Date: 20041129
  Serious: Yes (Hospitalization)
  Sender: FDA-Public Use
  Company Number: PHEH2003US06573

PATIENT
  Age: 75 Year
  Sex: Female

DRUGS (6)
  1. TRILEPTAL [Suspect]
     Indication: CONVULSION
     Dosage: 300 MG, BID
     Dates: start: 20010817, end: 20030722
  2. PRIMIDONE ^ERA^ (PRIMIDONE) [Concomitant]
  3. ATACAND [Concomitant]
  4. TRIAMTERENE [Concomitant]
  5. HYDROCHLOROTHIAZIDE [Concomitant]
  6. NOLVADEX ^ASTRAZENECA^ (TAMOXIFEN CITRATE) [Concomitant]

REACTIONS (7)
  - BACK PAIN [None]
  - CONVULSION [None]
  - DYSURIA [None]
  - ENCEPHALOPATHY [None]
  - FATIGUE [None]
  - HYPONATRAEMIA [None]
  - URINARY TRACT INFECTION [None]
